FAERS Safety Report 4537489-3 (Version None)
Quarter: 2005Q1

REPORT INFORMATION
  Report Type: 
  Country: None (occurrence: None)
  Receive Date: 20041216
  Receipt Date: 20040419
  Transmission Date: 20050727
  Serious: Yes (Other)
  Sender: FDA-Public Use
  Company Number: HQWYE534720APR04

PATIENT
  Age: 37 Year
  Sex: Male

DRUGS (1)
  1. EFFEXOR XR [Suspect]
     Indication: DEPRESSION
     Dosage: 75 MG 1X PER 1 DAY, ORAL; 150 MG 1X PER 1 DAY, ORAL
     Route: 048
     Dates: start: 20031101

REACTIONS (1)
  - PANCREATITIS [None]
